FAERS Safety Report 5684709-8 (Version None)
Quarter: 2008Q1

REPORT INFORMATION
  Report Type: 
  Country: None (occurrence: None)
  Receive Date: 20080328
  Receipt Date: 20070806
  Transmission Date: 20080703
  Serious: Yes (Disabling, Other)
  Sender: FDA-Public Use
  Company Number: US-BRISTOL-MYERS SQUIBB COMPANY-13848114

PATIENT
  Age: 65 Year
  Sex: Female

DRUGS (5)
  1. ERBITUX [Suspect]
     Indication: NEOPLASM MALIGNANT
     Dosage: I DOSE-668MG. II + III DOSES-415MG.
     Route: 042
     Dates: start: 20070709, end: 20070709
  2. RADIATION THERAPY [Suspect]
     Indication: NEOPLASM MALIGNANT
  3. BENADRYL [Concomitant]
  4. CAPHOSOL [Concomitant]
  5. ALOXI [Concomitant]

REACTIONS (4)
  - EXCORIATION [None]
  - HAEMORRHAGE [None]
  - RADIATION SKIN INJURY [None]
  - RASH [None]
